FAERS Safety Report 25423344 (Version 1)
Quarter: 2025Q2

REPORT INFORMATION
  Report Type: Spontaneous
  Country: JP (occurrence: JP)
  Receive Date: 20250611
  Receipt Date: 20250611
  Transmission Date: 20250716
  Serious: Yes (Hospitalization)
  Sender: MERCK SHARP & DOHME LLC
  Company Number: JP-ASTRAZENECA-202410GLO004200JP

PATIENT
  Age: 63 Year
  Sex: Male
  Weight: 58 kg

DRUGS (21)
  1. PEMBROLIZUMAB [Suspect]
     Active Substance: PEMBROLIZUMAB
     Indication: Squamous cell carcinoma of lung
     Route: 042
     Dates: start: 20241115, end: 20241115
  2. PEMBROLIZUMAB [Suspect]
     Active Substance: PEMBROLIZUMAB
     Indication: Squamous cell carcinoma of lung
     Route: 042
     Dates: start: 20240712, end: 20240822
  3. DENOSUMAB [Concomitant]
     Active Substance: DENOSUMAB
     Indication: Benign bone neoplasm
     Dosage: 120 MG, ONCE EVERY 4 WK
     Route: 058
     Dates: start: 20240702
  4. REBAMIPIDE [Concomitant]
     Active Substance: REBAMIPIDE
     Indication: Gastritis
     Route: 048
     Dates: start: 20240712, end: 20240730
  5. DEXTROSE\POTASSIUM CHLORIDE\SODIUM CHLORIDE\SODIUM LACTATE [Concomitant]
     Active Substance: DEXTROSE MONOHYDRATE\POTASSIUM CHLORIDE\SODIUM CHLORIDE\SODIUM LACTATE
     Indication: Weight decreased
     Dosage: 500 ML, QD
     Route: 042
     Dates: start: 20240921
  6. ROSUVASTATIN CALCIUM [Concomitant]
     Active Substance: ROSUVASTATIN CALCIUM
     Indication: Hyperlipidaemia
     Dosage: 2.5 MG, QD
     Route: 048
     Dates: start: 2011, end: 20240911
  7. LEVOFLOXACIN HEMIHYDRATE [Concomitant]
     Active Substance: LEVOFLOXACIN
     Indication: Infection
     Route: 031
     Dates: start: 20240925
  8. OMEPRAZOLE [Concomitant]
     Active Substance: OMEPRAZOLE
     Indication: Gastritis
     Dosage: 40 MG, QD (20 MILLIGRAM, BID )
     Route: 042
     Dates: start: 20240912
  9. CROTAMITON [Concomitant]
     Active Substance: CROTAMITON
     Indication: Pruritus
     Route: 003
     Dates: start: 20240914
  10. INSULIN HUMAN [Concomitant]
     Active Substance: INSULIN HUMAN
     Indication: Hyperglycaemia
     Route: 042
     Dates: start: 20241001
  11. WHITE PETROLATUM [Concomitant]
     Active Substance: PETROLATUM
     Indication: Decubitus ulcer
     Route: 003
     Dates: start: 20240913
  12. WHITE PETROLATUM [Concomitant]
     Active Substance: PETROLATUM
     Indication: Decubitus ulcer
     Route: 003
     Dates: start: 20240922
  13. WHITE PETROLATUM [Concomitant]
     Active Substance: PETROLATUM
     Indication: Decubitus ulcer
     Route: 003
     Dates: start: 20240916
  14. BACITRACIN [Concomitant]
     Active Substance: BACITRACIN
     Indication: Infection
     Route: 003
     Dates: start: 20240920
  15. SALIVENT [Concomitant]
     Indication: Dry mouth
     Route: 050
     Dates: start: 20240920
  16. VANTELIN [INDOMETACIN;MENTHOL] [Concomitant]
     Indication: Arthralgia
     Route: 003
     Dates: start: 2019
  17. MAGNESIUM OXIDE [Concomitant]
     Active Substance: MAGNESIUM OXIDE
     Indication: Constipation
     Route: 048
     Dates: start: 20240712, end: 20240803
  18. ACETAMINOPHEN [Concomitant]
     Active Substance: ACETAMINOPHEN
     Indication: Temporomandibular pain and dysfunction syndrome
     Route: 042
     Dates: start: 20240918
  19. PANTHENOL [DEXPANTHENOL] [Concomitant]
     Indication: Weight decreased
     Dosage: 500 MG, QD
     Route: 042
     Dates: start: 20240919
  20. LINAGLIPTIN [Concomitant]
     Active Substance: LINAGLIPTIN
     Indication: Hyperglycaemia
     Dosage: 5 MG, QD
     Route: 048
     Dates: start: 20240612, end: 20240701
  21. BISOPROLOL FUMARATE [Concomitant]
     Active Substance: BISOPROLOL FUMARATE
     Indication: Hypertension
     Route: 062
     Dates: start: 20240920

REACTIONS (1)
  - Phrenic nerve paralysis [Recovering/Resolving]

NARRATIVE: CASE EVENT DATE: 20241005
